FAERS Safety Report 10150719 (Version 1)
Quarter: 2014Q2

REPORT INFORMATION
  Report Type: Spontaneous
  Country: US (occurrence: US)
  Receive Date: 20140502
  Receipt Date: 20140502
  Transmission Date: 20141212
  Serious: No
  Sender: FDA-Public Use
  Company Number: US-PFIZER INC-2014119073

PATIENT
  Age: 45 Year
  Sex: Female

DRUGS (3)
  1. XANAX [Suspect]
     Dosage: 0.25 MG, AS NEEDED
  2. PROGRAF [Suspect]
     Dosage: 1 MG, 1X/DAY
     Route: 048
  3. PRILOSEC [Suspect]
     Dosage: 40 MG, UNK

REACTIONS (1)
  - Drug hypersensitivity [Unknown]
